FAERS Safety Report 5719926-1 (Version None)
Quarter: 2008Q2

REPORT INFORMATION
  Report Type: 
  Country: None (occurrence: None)
  Receive Date: 20080425
  Receipt Date: 20080425
  Transmission Date: 20081010
  Serious: Yes (Hospitalization)
  Sender: FDA-Public Use
  Company Number: None

PATIENT
  Age: 38 Year
  Sex: Female
  Weight: 61.2356 kg

DRUGS (10)
  1. CIPROBAY HC OTIC DROPS BAYER [Suspect]
     Indication: EAR PAIN
     Dosage: 2 DROPS/EAR 2 X DAILY/ 7 D OTIC
     Dates: start: 20080122, end: 20080129
  2. TAVANIC 500MG RECON [Suspect]
     Indication: UPPER RESPIRATORY TRACT INFECTION
     Dosage: 500 MG 2X DAILY PO
     Route: 048
     Dates: start: 20080209, end: 20080209
  3. MOBIC [Concomitant]
  4. RABEPRAZOLE SODIUM [Concomitant]
  5. BETASERC [Concomitant]
  6. LEVOCORTEN [Concomitant]
  7. VIOFORM -FLUMETASON + PIVALIC + CLIOQUINOL- [Concomitant]
  8. LEMSIP -IBUPROFEN + PSEUDOEPHEDRINE HCI BP [Concomitant]
  9. BRONCOPHANE -GUAIPHENESIN + EPHEDRINE HYDROCHLORIDE + DIPHENHYDRAMINE [Concomitant]
  10. DESLORATADINE [Concomitant]

REACTIONS (8)
  - DIZZINESS [None]
  - HYPOAESTHESIA [None]
  - MUSCLE SPASMS [None]
  - MUSCULAR WEAKNESS [None]
  - NAUSEA [None]
  - PAIN IN EXTREMITY [None]
  - PARAESTHESIA [None]
  - WEIGHT DECREASED [None]
